FAERS Safety Report 8962087 (Version 1)
Quarter: 2012Q4

REPORT INFORMATION
  Report Type: Report from Study
  Country: SE (occurrence: SE)
  Receive Date: 20121212
  Receipt Date: 20121212
  Transmission Date: 20130627
  Serious: Yes (Life-Threatening, Hospitalization)
  Sender: FDA-Public Use
  Company Number: SE-PFIZER INC-2012308253

PATIENT
  Age: 39 Year
  Sex: Female

DRUGS (44)
  1. METHYLPREDNISOLONE SODIUM SUCCINATE [Suspect]
     Indication: PROPHYLAXIS AGAINST RENAL TRANSPLANT REJECTION
     Dosage: 500 mg, 1x/day
     Route: 042
     Dates: start: 20030206, end: 20030209
  2. PREDNISOLONE [Suspect]
     Indication: PROPHYLAXIS AGAINST RENAL TRANSPLANT REJECTION
     Dosage: 2.5 mg, 1x/day
     Route: 048
     Dates: start: 20021205
  3. DACLIZUMAB [Suspect]
     Indication: PROPHYLAXIS AGAINST RENAL TRANSPLANT REJECTION
     Dosage: 120 mg, 1 in 1 total
     Route: 042
     Dates: start: 20021204
  4. DACLIZUMAB [Suspect]
     Dosage: 60 mg, 1 in 2 weeks
     Route: 042
     Dates: start: 20021218
  5. CICLOSPORIN [Suspect]
     Indication: PROPHYLAXIS AGAINST RENAL TRANSPLANT REJECTION
     Dosage: 75 mg (1 mg,75 in 1 D)
     Route: 048
     Dates: start: 20021204, end: 20021205
  6. CICLOSPORIN [Suspect]
     Dosage: 126 mg (2 mg,63 in 1 D)
     Route: 048
     Dates: start: 20021206
  7. CICLOSPORIN [Suspect]
     Dosage: 200 mg (2 mg,100 in 1 D)
     Route: 048
     Dates: start: 20030214
  8. CICLOSPORIN [Suspect]
     Dosage: 150 mg, (2 mg, 75 in 1 D)
     Route: 048
     Dates: start: 20030221, end: 20030424
  9. PREDNISOLONE [Suspect]
     Indication: PROPHYLAXIS AGAINST RENAL TRANSPLANT REJECTION
     Dosage: 100 mg, once (100 mg,1 in 1 Total)
     Route: 042
     Dates: start: 20021204, end: 20021204
  10. MYCOPHENOLATE MOFETIL [Suspect]
     Indication: PROPHYLAXIS AGAINST RENAL TRANSPLANT REJECTION
     Dosage: 1 g, 1x/day
     Route: 048
     Dates: start: 20021204
  11. MYCOPHENOLATE MOFETIL [Suspect]
     Dosage: 1 g, 2x/day
     Route: 048
     Dates: start: 20021205
  12. MYCOPHENOLATE MOFETIL [Suspect]
     Dosage: 750 mg, 2x/day
     Route: 048
     Dates: start: 20031107
  13. MYCOPHENOLATE MOFETIL [Suspect]
     Dosage: 500 mg, 2x/day
     Route: 048
     Dates: start: 20031120
  14. MYCOPHENOLATE MOFETIL [Suspect]
     Dosage: 750 mg, 2x/day
     Route: 048
     Dates: start: 20040209
  15. MYCOPHENOLATE MOFETIL [Suspect]
     Dosage: 875 mg, 2x/day
     Route: 048
     Dates: start: 20040302
  16. TACROLIMUS [Suspect]
     Indication: PROPHYLAXIS AGAINST RENAL TRANSPLANT REJECTION
     Dosage: 4 mg, 2x/day
     Route: 048
     Dates: start: 20030424
  17. TACROLIMUS [Suspect]
     Dosage: 1 mg, 2x/day
     Route: 048
     Dates: start: 20030428, end: 20040209
  18. AMOXICILLIN [Concomitant]
     Dosage: 750 mg, 2x/day
     Route: 048
     Dates: start: 20030305, end: 20030315
  19. CEFOTAXIME [Concomitant]
     Dosage: 1 g, 2x/day
     Route: 042
     Dates: start: 20040101, end: 20040116
  20. CEFUROXIME [Concomitant]
     Dosage: 1 mg,2 in 1 Total
     Route: 042
     Dates: start: 20021204, end: 20021205
  21. CEFUROXIME [Concomitant]
     Dosage: 1.5 mg, 3x/day
     Route: 042
     Dates: start: 20031229, end: 20040101
  22. CLINDAMYCIN [Concomitant]
     Dosage: 4 mg,150 in 1 D
     Route: 048
     Dates: start: 20021125, end: 20030201
  23. DOXYCYCLINE [Concomitant]
     Dosage: 100 mg, 1x/day
     Route: 048
     Dates: start: 20030129, end: 20030203
  24. EPOETIN ALFA [Concomitant]
     Dosage: UNK
     Route: 058
     Dates: end: 20021213
  25. EPOETIN ALFA [Concomitant]
     Dosage: 5000 IU, weekly
     Route: 058
     Dates: start: 20030402, end: 20030514
  26. EPOETIN ALFA [Concomitant]
     Dosage: 14000 IU, weekly
     Route: 058
  27. IMIPENEM [Concomitant]
     Dosage: 0.5 g, 2x/day
     Route: 042
     Dates: start: 20030924, end: 20031113
  28. INSULIN HUMAN [Concomitant]
     Dosage: 1 mL,10 in 1 D
     Route: 058
     Dates: start: 20021205, end: 20021206
  29. INSULIN LISPRO [Concomitant]
     Dosage: 49 IU (1 IU,49 in 1 D)
     Route: 058
     Dates: start: 20021205
  30. INSULIN LISPRO [Concomitant]
     Dosage: 64 IU (1 IU,64 in 1 D)
     Route: 058
     Dates: start: 20021206, end: 20021208
  31. INSULIN LISPRO [Concomitant]
     Dosage: 30 IU (1 IU,30 in 1 D)
     Route: 058
     Dates: start: 20021209
  32. INSULIN LISPRO [Concomitant]
     Dosage: 56 IU (1 IU,56 in 1 D)
     Route: 058
     Dates: start: 20021227
  33. INSULIN LISPRO [Concomitant]
     Dosage: 50 IU (1 IU,50 in 1 D)
     Route: 058
     Dates: start: 20030217
  34. INSULIN LISPRO [Concomitant]
     Dosage: 48 IU (1 IU,48 in 1 D)
     Route: 058
     Dates: start: 20030305
  35. INSULIN LISPRO [Concomitant]
     Dosage: 30 IU (30 IU,1 in 1 D)
     Route: 058
  36. IRBESARTAN [Concomitant]
     Dosage: 75 mg, 1x/day
     Route: 048
     Dates: start: 2003
  37. CLOXACILLIN [Concomitant]
     Dosage: 1 g, 3x/day
     Route: 042
     Dates: start: 20031205, end: 20031229
  38. LEVOFLOXACIN [Concomitant]
     Dosage: 250 mg, 1x/day
     Route: 048
     Dates: start: 20021217, end: 20021222
  39. METOPROLOL SUCCINATE [Concomitant]
     Dosage: 100 mg (1 mg,100 in 1 D)
     Route: 048
     Dates: start: 20021213, end: 20021227
  40. METOPROLOL SUCCINATE [Concomitant]
     Dosage: 50 mg, 1x/day
     Route: 048
     Dates: start: 20030402, end: 20031008
  41. NIFEDIPINE [Concomitant]
     Dosage: 30 mg (1 mg,30 in 1 D)
     Route: 048
     Dates: start: 20021210, end: 20021213
  42. PIPERACILLIN [Concomitant]
     Dosage: 4 mg, 3x/day
     Route: 042
     Dates: start: 20040102, end: 20040116
  43. VALACICLOVIR [Concomitant]
     Dosage: 500 mg, 2x/day
     Route: 048
     Dates: start: 20030228, end: 20030315
  44. VALACICLOVIR [Concomitant]
     Dosage: 500 mg, 2x/day
     Route: 048
     Dates: start: 20030320, end: 20030402

REACTIONS (6)
  - Peripheral ischaemia [Recovered/Resolved]
  - Pseudomonas infection [Recovered/Resolved]
  - Fluid overload [Recovered/Resolved]
  - Staphylococcal sepsis [Recovered/Resolved]
  - Bacterial sepsis [Recovered/Resolved]
  - Peripheral ischaemia [Recovered/Resolved]
